FAERS Safety Report 6155941-4 (Version None)
Quarter: 2009Q2

REPORT INFORMATION
  Report Type: 
  Country: None (occurrence: None)
  Receive Date: 20090410
  Receipt Date: 20090410
  Transmission Date: 20091009
  Serious: Yes (Other)
  Sender: FDA-Public Use
  Company Number: None

PATIENT
  Age: 24 Year
  Sex: Female
  Weight: 95.2554 kg

DRUGS (2)
  1. FENTANYL TRANSDERMAL SYSTEM [Suspect]
     Indication: PAIN MANAGEMENT
     Dosage: CHANGE EVERY 72 HR OTHER
     Route: 050
     Dates: start: 20090311, end: 20090312
  2. FENTANYL TRANSDERMAL SYSTEM [Suspect]
     Indication: RENAL VEIN THROMBOSIS
     Dosage: CHANGE EVERY 72 HR OTHER
     Route: 050
     Dates: start: 20090311, end: 20090312

REACTIONS (6)
  - DYSPNOEA [None]
  - HYPERHIDROSIS [None]
  - HYPERSOMNIA [None]
  - MALAISE [None]
  - URTICARIA [None]
  - VOMITING [None]
